FAERS Safety Report 7707821-8 (Version None)
Quarter: 2011Q3

REPORT INFORMATION
  Report Type: 
  Country: None (occurrence: None)
  Receive Date: 20110824
  Receipt Date: 20110811
  Transmission Date: 20111222
  Serious: Yes (Other)
  Sender: FDA-Public Use
  Company Number: PHHY2011JP35074

PATIENT
  Age: 76 Year
  Sex: Male
  Weight: 69 kg

DRUGS (24)
  1. EXJADE [Suspect]
     Indication: IRON OVERLOAD
     Dosage: 1250 MG, DAILY
     Route: 048
     Dates: start: 20080805, end: 20090414
  2. ALLOPURINOL [Concomitant]
     Dosage: 100 MG, UNK
     Route: 048
  3. BERIZYM [Concomitant]
     Dosage: 1.5 G, UNK
     Route: 048
     Dates: start: 20080611
  4. SPRYCEL [Concomitant]
     Dosage: 50 MG, UNK
     Route: 048
  5. RED BLOOD CELLS, CONCENTRATED [Concomitant]
     Dosage: 4 U, 4 UNITS EVERY 4 WEEKS
     Dates: start: 20080908, end: 20091016
  6. EXJADE [Suspect]
     Dosage: 1250 MG, DAILY
     Route: 048
     Dates: start: 20090501, end: 20100324
  7. GLEEVEC [Concomitant]
     Indication: CHRONIC MYELOID LEUKAEMIA
     Dosage: 800 MG, UNK
     Route: 048
     Dates: start: 20080409
  8. ASPARA K [Concomitant]
     Dosage: 1200 MG, UNK
     Route: 048
     Dates: end: 20081109
  9. ALLOPURINOL [Concomitant]
     Dosage: 200 MG, UNK
     Route: 048
     Dates: start: 20080625
  10. OMEPRAZOLE [Concomitant]
     Indication: PROPHYLAXIS
     Dosage: 20 MG, UNK
     Route: 048
  11. SPRYCEL [Concomitant]
     Dosage: 50 MG, UNK
     Route: 048
  12. DIURETICS [Concomitant]
  13. TASIGNA [Suspect]
     Indication: CHRONIC MYELOID LEUKAEMIA
     Dosage: 800 MG, UNK
     Route: 048
     Dates: start: 20090402, end: 20090414
  14. SLOW-K [Concomitant]
     Dosage: 2400 MG, UNK
     Route: 048
     Dates: start: 20081110
  15. LASIX [Concomitant]
     Dosage: 80 MG, UNK
     Route: 048
     Dates: start: 20080514
  16. SPRYCEL [Concomitant]
     Dosage: 20 MG, UNK
     Route: 048
  17. CORTRIL [Concomitant]
     Dosage: 20 MG, UNK
     Route: 048
  18. EPOGIN [Concomitant]
     Dosage: UNK
     Dates: start: 20090520
  19. DESFERAL [Concomitant]
     Indication: IRON OVERLOAD
     Dosage: 1000 MG, UNK
     Route: 048
     Dates: start: 20080613, end: 20080804
  20. GLEEVEC [Concomitant]
     Dosage: 800 MG, UNK
     Route: 048
     Dates: end: 20091115
  21. LEVOTHYROXINE SODIUM [Concomitant]
     Dosage: 50 UG, UNK
     Route: 048
     Dates: start: 20010101
  22. SPRYCEL [Concomitant]
     Indication: CHRONIC MYELOID LEUKAEMIA
     Dosage: 70 MG, UNK
     Route: 048
     Dates: start: 20091119
  23. LEVOTHYROXINE SODIUM [Concomitant]
     Dosage: 75 UG, UNK
     Route: 048
  24. OMEPRAZOLE [Concomitant]
     Dosage: 10 MG, UNK
     Route: 048

REACTIONS (4)
  - RENAL FAILURE CHRONIC [None]
  - RENAL ATROPHY [None]
  - SEPSIS [None]
  - LIVER DISORDER [None]
